FAERS Safety Report 9261447 (Version 4)
Quarter: 2014Q3

REPORT INFORMATION
  Report Type: Spontaneous
  Country: US (occurrence: US)
  Receive Date: 20130429
  Receipt Date: 20140812
  Transmission Date: 20150326
  Serious: Yes (Hospitalization, Other)
  Sender: FDA-Public Use
  Company Number: US-009507513-1304USA014020

PATIENT
  Sex: Female
  Weight: 72.56 kg

DRUGS (3)
  1. NUVARING [Suspect]
     Active Substance: ETHINYL ESTRADIOL\ETONOGESTREL
     Indication: CONTRACEPTION
     Dosage: UNK
     Route: 067
     Dates: start: 20071218, end: 201107
  2. EFFEXOR XR [Suspect]
     Active Substance: VENLAFAXINE HYDROCHLORIDE
     Indication: ANXIETY
     Dosage: 75 MG, QD
     Route: 048
     Dates: start: 20071218
  3. NUVARING [Suspect]
     Active Substance: ETHINYL ESTRADIOL\ETONOGESTREL
     Indication: MENSTRUATION IRREGULAR

REACTIONS (17)
  - Generalised tonic-clonic seizure [Unknown]
  - Superior sagittal sinus thrombosis [Recovered/Resolved]
  - Adrenal mass [Unknown]
  - Headache [Not Recovered/Not Resolved]
  - Drug prescribing error [Unknown]
  - Depression [Unknown]
  - Iron deficiency anaemia [Unknown]
  - Cerebral infarction [Unknown]
  - Vitamin B12 deficiency [Unknown]
  - Brain oedema [Not Recovered/Not Resolved]
  - Muscle spasms [Unknown]
  - Uterine leiomyoma [Unknown]
  - Restless legs syndrome [Not Recovered/Not Resolved]
  - Off label use [Unknown]
  - Haemorrhoids [Unknown]
  - Syncope [Unknown]
  - Hysterectomy [Unknown]

NARRATIVE: CASE EVENT DATE: 20071218
